FAERS Safety Report 9768297 (Version 3)
Quarter: 2014Q2

REPORT INFORMATION
  Report Type: Spontaneous
  Country: US (occurrence: US)
  Receive Date: 20131217
  Receipt Date: 20140401
  Transmission Date: 20141212
  Serious: Yes (Other)
  Sender: FDA-Public Use
  Company Number: US-TEVA-450948USA

PATIENT
  Sex: Female

DRUGS (15)
  1. ESTRADIOL [Suspect]
     Dosage: 1 MILLIGRAM DAILY;
  2. MEDROXYPROGESTERONE [Suspect]
  3. SIMVASTATIN [Suspect]
     Dosage: 20 MILLIGRAM DAILY;
  4. ENTOCORT EC [Concomitant]
  5. BABY ASPIRIN [Concomitant]
     Dosage: 81 MILLIGRAM DAILY;
     Route: 048
  6. SYNTHROID [Concomitant]
     Dosage: 175 MICROGRAM DAILY;
  7. DELZICOL DR [Concomitant]
     Dosage: 1200 MILLIGRAM DAILY;
  8. PROBIOTIC [Concomitant]
  9. MELATONIN [Concomitant]
     Dosage: 5 MILLIGRAM DAILY;
  10. WOMENS MULTI CAPSULE [Concomitant]
  11. CRANBERRY [Concomitant]
     Dosage: 4200 MILLIGRAM DAILY;
  12. COQ-10 [Concomitant]
  13. FISH OIL [Concomitant]
  14. FLONASE [Concomitant]
  15. PROVERA [Concomitant]
     Dosage: 2.5 MILLIGRAM DAILY;

REACTIONS (3)
  - Coeliac disease [Unknown]
  - Colitis microscopic [Unknown]
  - Diarrhoea [Unknown]
